FAERS Safety Report 21603519 (Version 1)
Quarter: 2022Q4

REPORT INFORMATION
  Report Type: Spontaneous
  Country: US (occurrence: US)
  Receive Date: 20221116
  Receipt Date: 20221116
  Transmission Date: 20230113
  Serious: No
  Sender: FDA-Public Use
  Company Number: US-PERRIGO-22US001226

PATIENT
  Sex: Female
  Weight: 68.934 kg

DRUGS (3)
  1. POLYETHYLENE GLYCOL 3350 [Suspect]
     Active Substance: POLYETHYLENE GLYCOL 3350
     Indication: Constipation
     Dosage: SLIGHTLY LESS THAN 17 G, QD
     Route: 048
     Dates: start: 2018, end: 2018
  2. POLYETHYLENE GLYCOL 3350 [Suspect]
     Active Substance: POLYETHYLENE GLYCOL 3350
     Dosage: SLIGHTLY LESS THAN 17 G, QD
     Route: 048
     Dates: start: 2019, end: 2019
  3. POLYETHYLENE GLYCOL 3350 [Suspect]
     Active Substance: POLYETHYLENE GLYCOL 3350
     Dosage: SLIGHTLY LESS THAN 17 G (APPROX. 2 TEASPOONS), QD
     Route: 048
     Dates: start: 202111

REACTIONS (2)
  - Incorrect product administration duration [Not Recovered/Not Resolved]
  - Underdose [Not Recovered/Not Resolved]

NARRATIVE: CASE EVENT DATE: 20180101
